FAERS Safety Report 6157159-8 (Version None)
Quarter: 2009Q2

REPORT INFORMATION
  Report Type: 
  Country: None (occurrence: None)
  Receive Date: 20090413
  Receipt Date: 20090401
  Transmission Date: 20091009
  Serious: No
  Sender: FDA-Public Use
  Company Number: 2008-186002-NL

PATIENT
  Sex: Female

DRUGS (2)
  1. IMPLANON [Suspect]
     Dosage: DF
     Dates: start: 20040513, end: 20081112
  2. BIVIOL [Suspect]
     Dosage: DF

REACTIONS (2)
  - BREAST CANCER STAGE II [None]
  - DEVICE MIGRATION [None]
